FAERS Safety Report 8365495-X (Version None)
Quarter: 2012Q2

REPORT INFORMATION
  Report Type: 
  Country: None (occurrence: None)
  Receive Date: 20120516
  Receipt Date: 20120511
  Transmission Date: 20120825
  Serious: Yes (Hospitalization)
  Sender: FDA-Public Use
  Company Number: US-BAYER-2012-011530

PATIENT
  Age: 21 Year
  Sex: Female
  Weight: 65.76 kg

DRUGS (12)
  1. PANTOPRAZOLE [Concomitant]
     Indication: GASTRIC PH DECREASED
  2. DROSPIRENONE AND ETHINYL ESTRADIOL [Suspect]
     Dosage: UNK
     Dates: start: 20090105, end: 20100202
  3. DIURETICS [Concomitant]
  4. NSAID'S [Concomitant]
  5. ANALGESICS [Concomitant]
     Indication: HEADACHE
  6. YASMIN [Suspect]
     Indication: CONTRACEPTION
     Dosage: UNK
     Dates: start: 20051216, end: 20071230
  7. PROTONIX [Concomitant]
     Dosage: UNK UNK, PRN
  8. ADVAIR DISKUS 100/50 [Concomitant]
     Dosage: UNK UNK, PRN
  9. MINOCYCLINE HCL [Concomitant]
  10. ASTHMA [Concomitant]
  11. LAMOTRIGINE [Concomitant]
     Indication: AFFECTIVE DISORDER
  12. NASAL DECONGESTANTS FOR SYSTEMIC USE [Concomitant]
     Indication: SEASONAL ALLERGY

REACTIONS (4)
  - INJURY [None]
  - ABDOMINAL PAIN UPPER [None]
  - PAIN [None]
  - CHOLECYSTITIS CHRONIC [None]
